FAERS Safety Report 4919461-4 (Version None)
Quarter: 2006Q1

REPORT INFORMATION
  Report Type: 
  Country: None (occurrence: None)
  Receive Date: 20060216
  Receipt Date: 20060201
  Transmission Date: 20060701
  Serious: Yes (Death, Life-Threatening, Hospitalization, Other)
  Sender: FDA-Public Use
  Company Number: CIP06000292

PATIENT
  Age: 85 Year
  Sex: Female
  Weight: 63.9 kg

DRUGS (9)
  1. ACTONEL [Suspect]
     Indication: OSTEOPOROSIS POSTMENOPAUSAL
     Dosage: 35 MG WEEKLY, ORAL
     Route: 048
     Dates: start: 20030405, end: 20050304
  2. OS-CAL (CALCIUM, ERGOCALCIFEROL) [Concomitant]
  3. VITAMIN D [Concomitant]
  4. HYDRODIURIL [Concomitant]
  5. TIMOPTIC [Concomitant]
  6. DICLOFENAC (DICLOFENAC) [Concomitant]
  7. ASCORBIC ACID [Concomitant]
  8. CYANOCOBALAMIN [Concomitant]
  9. VITAMIN E [Concomitant]

REACTIONS (9)
  - CONSTIPATION [None]
  - DUODENAL ULCER HAEMORRHAGE [None]
  - HYPOTENSION [None]
  - LOSS OF CONSCIOUSNESS [None]
  - MYOCARDIAL INFARCTION [None]
  - PNEUMONIA ASPIRATION [None]
  - RESPIRATORY DEPRESSION [None]
  - THROMBOSIS [None]
  - URINARY TRACT INFECTION [None]
